FAERS Safety Report 10530225 (Version 1)
Quarter: 2014Q4

REPORT INFORMATION
  Report Type: Spontaneous
  Country: US (occurrence: US)
  Receive Date: 20141021
  Receipt Date: 20141021
  Transmission Date: 20150528
  Serious: Yes (Hospitalization)
  Sender: FDA-Public Use
  Company Number: US-PFIZER INC-2014287794

PATIENT
  Sex: Female

DRUGS (1)
  1. PRISTIQ EXTENDED RELEASE [Suspect]
     Active Substance: DESVENLAFAXINE SUCCINATE
     Indication: MAJOR DEPRESSION
     Dosage: UNK
     Dates: start: 2007

REACTIONS (1)
  - Respiratory fume inhalation disorder [Unknown]

NARRATIVE: CASE EVENT DATE: 2013
